FAERS Safety Report 10037933 (Version 2)
Quarter: 2014Q1

REPORT INFORMATION
  Report Type: Spontaneous
  Country: FR (occurrence: FR)
  Receive Date: 20140326
  Receipt Date: 20140326
  Transmission Date: 20141002
  Serious: Yes (Hospitalization)
  Sender: FDA-Public Use
  Company Number: FR-SA-2013SA122393

PATIENT
  Age: 71 Year
  Sex: Male

DRUGS (15)
  1. XATRAL [Suspect]
     Indication: PRODUCT USED FOR UNKNOWN INDICATION
     Route: 048
     Dates: start: 20131005, end: 20131101
  2. FLUDARA [Suspect]
     Indication: CHRONIC LYMPHOCYTIC LEUKAEMIA
     Route: 048
     Dates: start: 20130924, end: 20131026
  3. BACTRIM FORTE [Suspect]
     Indication: PRODUCT USED FOR UNKNOWN INDICATION
     Route: 048
     Dates: start: 20130924, end: 20131029
  4. ZELITREX [Suspect]
     Indication: PRODUCT USED FOR UNKNOWN INDICATION
     Route: 048
     Dates: start: 20130924, end: 20131029
  5. MABTHERA [Suspect]
     Indication: CHRONIC LYMPHOCYTIC LEUKAEMIA
     Dosage: FREQUENCY: TWICE A MONTH
     Route: 042
     Dates: start: 20130924, end: 20131026
  6. ENDOXAN [Suspect]
     Indication: CHRONIC LYMPHOCYTIC LEUKAEMIA
     Route: 048
     Dates: start: 20130924, end: 20131026
  7. INEXIUM [Concomitant]
     Route: 048
  8. PRAVASTATINE [Concomitant]
     Route: 048
  9. FLECAINE [Concomitant]
     Route: 048
  10. KARDEGIC [Concomitant]
     Route: 048
  11. METFORMIN [Concomitant]
     Route: 048
  12. INNOHEP [Concomitant]
     Route: 058
     Dates: start: 201309
  13. GRANOCYTE [Concomitant]
     Route: 058
     Dates: start: 20131030, end: 20131104
  14. PENTACARINAT [Concomitant]
     Dates: start: 20131029
  15. CO-TRIMOXAZOLE [Concomitant]

REACTIONS (7)
  - Drug reaction with eosinophilia and systemic symptoms [Recovered/Resolved]
  - Rash erythematous [Recovered/Resolved]
  - C-reactive protein increased [Recovered/Resolved]
  - Eosinophilia [Recovered/Resolved]
  - Leukocytosis [Recovered/Resolved]
  - Neutrophilia [Recovered/Resolved]
  - Rash pruritic [Recovered/Resolved]
